FAERS Safety Report 7448282-6 (Version None)
Quarter: 2011Q2

REPORT INFORMATION
  Report Type: 
  Country: None (occurrence: None)
  Receive Date: 20110429
  Receipt Date: 20110328
  Transmission Date: 20111010
  Serious: Yes (Other)
  Sender: FDA-Public Use
  Company Number: ES-B.I. PHARMACEUTICALS,INC./RIDGEFIELD-2011-DE-02752BY

PATIENT
  Age: 55 Year
  Sex: Male

DRUGS (4)
  1. ALLOPURINOL [Concomitant]
  2. TELMISARTAN [Suspect]
     Indication: HYPERCHOLESTEROLAEMIA
     Route: 048
     Dates: start: 20110119, end: 20110305
  3. AMOXICILLINE + CLAVULANIC ACID [Suspect]
     Indication: RESPIRATORY TRACT INFECTION
     Route: 048
     Dates: start: 20110228, end: 20110305
  4. ACALKA [Concomitant]

REACTIONS (2)
  - HEPATITIS [None]
  - HYPERBILIRUBINAEMIA [None]
